FAERS Safety Report 7317085-5 (Version None)
Quarter: 2011Q1

REPORT INFORMATION
  Report Type: 
  Country: None (occurrence: None)
  Receive Date: 20110226
  Receipt Date: 20100923
  Transmission Date: 20110831
  Serious: No
  Sender: FDA-Public Use
  Company Number: US-ALLERGAN-1012353US

PATIENT
  Age: 43 Year
  Sex: Female

DRUGS (4)
  1. SINGULAIR [Concomitant]
     Indication: PRODUCT USED FOR UNKNOWN INDICATION
     Dosage: 10 MG, QD
     Route: 048
  2. BOTOX COSMETIC [Suspect]
     Dosage: 12.5 UNITS, SINGLE
     Route: 030
     Dates: start: 20091203, end: 20091203
  3. BOTOX COSMETIC [Suspect]
     Indication: SKIN WRINKLING
     Dosage: UNK UNITS, SINGLE
     Route: 030
     Dates: start: 20091103, end: 20091103
  4. ZANTAC                             /00550801/ [Concomitant]
     Indication: REFLUX OESOPHAGITIS
     Dosage: 150 UNITS, QD

REACTIONS (14)
  - OROPHARYNGEAL PAIN [None]
  - DYSPNOEA [None]
  - FATIGUE [None]
  - PALPITATIONS [None]
  - MUSCULAR WEAKNESS [None]
  - NASOPHARYNGITIS [None]
  - EYELID OEDEMA [None]
  - HYPOAESTHESIA FACIAL [None]
  - NECK PAIN [None]
  - DYSPHAGIA [None]
  - EYELID PTOSIS [None]
  - MUSCLE SPASMS [None]
  - GASTROOESOPHAGEAL REFLUX DISEASE [None]
  - VISUAL IMPAIRMENT [None]
